FAERS Safety Report 8591096-4 (Version None)
Quarter: 2012Q3

REPORT INFORMATION
  Report Type: 
  Country: None (occurrence: None)
  Receive Date: 20120813
  Receipt Date: 20120809
  Transmission Date: 20120928
  Serious: Yes (Disabling, Other)
  Sender: FDA-Public Use
  Company Number: CHPA2011US015960

PATIENT
  Age: 78 Year
  Sex: Male

DRUGS (2)
  1. VOLTAREN [Suspect]
     Indication: MYALGIA
     Dosage: ON AND OFF
     Route: 061
     Dates: start: 20101101
  2. VOLTAREN [Suspect]
     Dosage: UNK, ONCE
     Route: 047

REACTIONS (10)
  - IMPAIRED DRIVING ABILITY [None]
  - VISUAL IMPAIRMENT [None]
  - APPLICATION SITE IRRITATION [None]
  - WRONG TECHNIQUE IN DRUG USAGE PROCESS [None]
  - OFF LABEL USE [None]
  - DRUG ADMINISTERED AT INAPPROPRIATE SITE [None]
  - EYELID FUNCTION DISORDER [None]
  - ACCIDENTAL EXPOSURE [None]
  - APPLICATION SITE PAIN [None]
  - CATARACT [None]
